FAERS Safety Report 4697765-0 (Version None)
Quarter: 2005Q2

REPORT INFORMATION
  Report Type: 
  Country: None (occurrence: None)
  Receive Date: 20050623
  Receipt Date: 20050615
  Transmission Date: 20051028
  Serious: Yes (Hospitalization)
  Sender: FDA-Public Use
  Company Number: US-JNJFOC-20050604602

PATIENT
  Age: 61 Year
  Sex: Female

DRUGS (7)
  1. TOPAMAX [Suspect]
     Route: 049
  2. TOPAMAX [Suspect]
     Indication: MIGRAINE
     Route: 049
  3. LITHIUM [Concomitant]
     Indication: BIPOLAR DISORDER
     Route: 049
  4. ZOLOFT [Concomitant]
     Indication: DEPRESSION
     Route: 049
  5. LIPITOR [Concomitant]
     Route: 049
  6. BENICAR [Concomitant]
     Indication: HYPERTENSION
     Route: 049
     Dates: start: 20050401, end: 20050501
  7. BENADRYL [Concomitant]
     Dosage: AS NEEDED
     Route: 049

REACTIONS (4)
  - ANTIPSYCHOTIC DRUG LEVEL INCREASED [None]
  - BACK PAIN [None]
  - HEART RATE IRREGULAR [None]
  - TREMOR [None]
